FAERS Safety Report 6982990-6 (Version None)
Quarter: 2010Q3

REPORT INFORMATION
  Report Type: 
  Country: None (occurrence: None)
  Receive Date: 20100914
  Receipt Date: 20100524
  Transmission Date: 20110219
  Serious: No
  Sender: FDA-Public Use
  Company Number: US-PFIZER INC-2010065784

PATIENT
  Sex: Female

DRUGS (4)
  1. LYRICA [Suspect]
     Indication: FIBROMYALGIA
     Dosage: UNK
     Dates: start: 20090901, end: 20091101
  2. EFFEXOR XR [Concomitant]
     Indication: DEPRESSION
     Dosage: UNK
  3. WELLBUTRIN [Concomitant]
     Indication: DEPRESSION
     Dosage: UNK
  4. NEURONTIN [Concomitant]
     Dosage: 900 MG, 3X/DAY
     Route: 048

REACTIONS (1)
  - ABDOMINAL DISCOMFORT [None]
